FAERS Safety Report 5627477-8 (Version None)
Quarter: 2008Q1

REPORT INFORMATION
  Report Type: 
  Country: None (occurrence: None)
  Receive Date: 20080215
  Receipt Date: 20080211
  Transmission Date: 20080703
  Serious: Yes (Life-Threatening, Other)
  Sender: FDA-Public Use
  Company Number: CHWYE837012JUN07

PATIENT
  Age: 1 Month
  Sex: Female
  Weight: 2.25 kg

DRUGS (7)
  1. EFFEXOR [Suspect]
     Indication: DEPRESSION
     Route: 064
     Dates: start: 20060701
  2. STILNOX [Concomitant]
     Route: 064
  3. ACETAMINOPHEN [Concomitant]
     Indication: PAIN
     Dosage: UNSPECIFIED
     Route: 064
  4. MOTILIUM [Concomitant]
     Indication: DYSPEPSIA
     Dosage: UNSPECIFIED
     Route: 064
  5. PANTOZOL [Concomitant]
     Indication: GASTROOESOPHAGEAL REFLUX DISEASE
     Dosage: UNSPECIFIED
     Route: 064
  6. LEXOTANIL [Concomitant]
     Indication: ANXIETY DISORDER
     Route: 064
  7. DICETEL [Concomitant]
     Indication: DYSPEPSIA
     Dosage: UNSPECIFIED
     Route: 064

REACTIONS (1)
  - ACUTE LYMPHOCYTIC LEUKAEMIA [None]
